FAERS Safety Report 4338374-2 (Version None)
Quarter: 2004Q2

REPORT INFORMATION
  Report Type: 
  Country: None (occurrence: None)
  Receive Date: 20040409
  Receipt Date: 20040323
  Transmission Date: 20050107
  Serious: Yes (Hospitalization)
  Sender: FDA-Public Use
  Company Number: 2004AP01559

PATIENT
  Age: 24 Year
  Sex: Female

DRUGS (11)
  1. SEROQUEL [Suspect]
     Indication: INSOMNIA
     Dosage: 25 MG DAILY PO
     Route: 048
     Dates: start: 20030221, end: 20030306
  2. SEROQUEL [Suspect]
     Indication: IRRITABILITY
     Dosage: 50 MG DAILY PO
     Route: 048
     Dates: start: 20030307, end: 20040417
  3. SEROQUEL [Suspect]
     Indication: IRRITABILITY
     Dosage: 75 MG DAILY PO
     Route: 048
     Dates: start: 20030418, end: 20030508
  4. SEROQUEL [Suspect]
     Indication: INSOMNIA
     Dosage: 100 MG DAILY PO
     Route: 048
     Dates: start: 20030509, end: 20030522
  5. SEROQUEL [Suspect]
     Indication: INSOMNIA
     Dosage: 200 MG DAILY PO
     Route: 048
     Dates: start: 20030523, end: 20030619
  6. SEROQUEL [Suspect]
     Indication: IRRITABILITY
     Dosage: 300 MG DAILY PO
     Route: 048
     Dates: start: 20030620, end: 20030918
  7. SEROQUEL [Suspect]
     Indication: INSOMNIA
     Dosage: 300 MG BID PO
     Route: 048
     Dates: start: 20030919, end: 20030101
  8. SEROQUEL [Suspect]
     Indication: IRRITABILITY
     Dosage: 6000 MG ONCE PO
     Route: 048
     Dates: start: 20031002, end: 20031002
  9. SEROQUEL [Suspect]
     Indication: INSOMNIA
     Dosage: 300 MG ONCE PO
     Route: 048
     Dates: start: 20031005, end: 20031005
  10. SEROQUEL [Suspect]
     Dosage: 600 MG DAILY PO
     Route: 048
     Dates: start: 20031006
  11. SILECE [Concomitant]

REACTIONS (5)
  - HYPERBILIRUBINAEMIA [None]
  - OVERDOSE [None]
  - PYREXIA [None]
  - SOMNOLENCE [None]
  - WHITE BLOOD CELL COUNT INCREASED [None]
